FAERS Safety Report 5275880-0 (Version None)
Quarter: 2007Q1

REPORT INFORMATION
  Report Type: 
  Country: None (occurrence: None)
  Receive Date: 20061213
  Receipt Date: 20060508
  Transmission Date: 20070707
  Serious: Yes (Hospitalization)
  Sender: FDA-Public Use
  Company Number: 2006UW09019

PATIENT
  Age: 28 Year
  Sex: Female

DRUGS (4)
  1. SEROQUEL [Suspect]
     Dosage: 600 MG; PO
     Route: 048
  2. RISPERDAL [Concomitant]
  3. LITHIUM CARBONATE [Concomitant]
  4. ZYPREXA [Concomitant]

REACTIONS (4)
  - EXTRAPYRAMIDAL DISORDER [None]
  - MANIA [None]
  - TARDIVE DYSKINESIA [None]
  - THERAPEUTIC AGENT TOXICITY [None]
